FAERS Safety Report 10535467 (Version 2)
Quarter: 2019Q4

REPORT INFORMATION
  Report Type: Spontaneous
  Country: US (occurrence: US)
  Receive Date: 20141022
  Receipt Date: 20191112
  Transmission Date: 20200122
  Serious: Yes (Other)
  Sender: FDA-Public Use
  Company Number: US-PFIZER INC-2014287711

PATIENT
  Age: 60 Year
  Sex: Female
  Weight: 85 kg

DRUGS (23)
  1. ESTRING [Suspect]
     Active Substance: ESTRADIOL
     Indication: HORMONE REPLACEMENT THERAPY
     Dosage: 2 MG, EVERY 3 MONTHS
     Dates: start: 2007
  2. RESTASIS [Concomitant]
     Active Substance: CYCLOSPORINE
     Indication: DRY EYE
  3. CHLOROMYCETIN [CHLORAMPHENICOL] [Concomitant]
     Dosage: UNK
  4. LIPITOR [Concomitant]
     Active Substance: ATORVASTATIN CALCIUM
     Indication: BLOOD CHOLESTEROL INCREASED
     Dosage: 20 MG, UNK
  5. OXYBUTYNIN. [Concomitant]
     Active Substance: OXYBUTYNIN CHLORIDE
     Indication: BLADDER SPASM
     Dosage: 5 MG, 2X/DAY
  6. TRIAMTERENE. [Concomitant]
     Active Substance: TRIAMTERENE
     Indication: HYPERTENSION
     Dosage: UNK
  7. DOXYCYCLINE. [Concomitant]
     Active Substance: DOXYCYCLINE
     Indication: HERPES ZOSTER
     Dosage: 100 MG, 2X/DAY
  8. RESTASIS [Concomitant]
     Active Substance: CYCLOSPORINE
     Indication: HERPES ZOSTER
     Dosage: 4 GTT, 1X/DAY (2 DROPS A DAY PER EYE)
  9. BACITRACIN. [Concomitant]
     Active Substance: BACITRACIN
     Dosage: UNK
  10. NOVOCAIN [Concomitant]
     Active Substance: PROCAINE HYDROCHLORIDE
     Dosage: UNK
  11. PREDNISONE. [Concomitant]
     Active Substance: PREDNISONE
     Indication: COLITIS ULCERATIVE
     Dosage: 5 MG, UNK
  12. ERYTHROMYCIN. [Concomitant]
     Active Substance: ERYTHROMYCIN
     Dosage: UNK
  13. DEXILANT [Concomitant]
     Active Substance: DEXLANSOPRAZOLE
     Indication: GASTROOESOPHAGEAL REFLUX DISEASE
     Dosage: 60 MG, 2X/DAY
  14. ACYCLOVIR [ACICLOVIR] [Concomitant]
     Active Substance: ACYCLOVIR
     Indication: HERPES ZOSTER
     Dosage: 400 MG, 2X/DAY
  15. VITAMIN D3 [Concomitant]
     Active Substance: CHOLECALCIFEROL
     Dosage: 1000 IU, WEEKLY(10000 UNITS ONCE A WEEK)
  16. LEVOTHYROXINE. [Concomitant]
     Active Substance: LEVOTHYROXINE
     Indication: HYPOTHYROIDISM
     Dosage: UNK UNK, 1X/DAY (175 (DOSAGE UNIT NOT CLARIFIED FURTHER))
  17. METHOTREXATE. [Concomitant]
     Active Substance: METHOTREXATE
  18. VALIUM [Concomitant]
     Active Substance: DIAZEPAM
     Dosage: UNK
  19. ASPIRIN [ACETYLSALICYLIC ACID] [Concomitant]
     Active Substance: ASPIRIN
     Indication: IMMUNE THROMBOCYTOPENIC PURPURA
     Dosage: UNK
  20. TOBRAMYCIN. [Concomitant]
     Active Substance: TOBRAMYCIN
     Dosage: UNK
  21. ESTRING [Suspect]
     Active Substance: ESTRADIOL
     Indication: CERVICAL DYSPLASIA
     Dosage: 2 MG, EVERY 3 MONTHS
     Dates: start: 20141002
  22. PRISTIQ EXTENDED-RELEASE [Concomitant]
     Active Substance: DESVENLAFAXINE SUCCINATE
     Dosage: UNK
  23. DEMEROL [Concomitant]
     Active Substance: MEPERIDINE HYDROCHLORIDE
     Dosage: UNK

REACTIONS (13)
  - Autoimmune arthritis [Unknown]
  - Salmonellosis [Unknown]
  - Delirium [Unknown]
  - Tendonitis [Unknown]
  - Product complaint [Unknown]
  - Weight increased [Unknown]
  - Urticaria [Unknown]
  - Vulvovaginal pain [Unknown]
  - Vulvovaginal discomfort [Unknown]
  - White blood cell count abnormal [Unknown]
  - Body height decreased [Unknown]
  - Inflammation [Unknown]
  - Pyrexia [Unknown]

NARRATIVE: CASE EVENT DATE: 20141013
